FAERS Safety Report 9185922 (Version 1)
Quarter: 2013Q1

REPORT INFORMATION
  Report Type: Spontaneous
  Country: US (occurrence: US)
  Receive Date: 20130325
  Receipt Date: 20130325
  Transmission Date: 20140127
  Serious: No
  Sender: FDA-Public Use
  Company Number: US-UPSHER-SMITH LABORATORIES, INC.-12001827

PATIENT
  Age: 87 Year
  Sex: Female

DRUGS (3)
  1. PROPRANOLOL HCL [Suspect]
     Indication: HYPERTENSION
     Dosage: 60 MG, QD
     Route: 048
     Dates: start: 20120803, end: 20120807
  2. DIOVAN                             /01319601/ [Concomitant]
     Dosage: UNK
  3. PROTANDIM [Concomitant]
     Dosage: UNK

REACTIONS (2)
  - Drug ineffective [Recovering/Resolving]
  - Headache [Recovered/Resolved]
